FAERS Safety Report 17007667 (Version 5)
Quarter: 2019Q4

REPORT INFORMATION
  Report Type: Spontaneous
  Country: JP (occurrence: JP)
  Receive Date: 20191108
  Receipt Date: 20191230
  Transmission Date: 20200122
  Serious: Yes (Death, Other)
  Sender: FDA-Public Use
  Company Number: JP-AMGEN-JPNSP2019183922

PATIENT
  Age: 71 Year
  Sex: Female

DRUGS (1)
  1. ROMIPLATE [Suspect]
     Active Substance: ROMIPLOSTIM
     Indication: IMMUNE THROMBOCYTOPENIC PURPURA
     Dosage: 50 UG, SINGLE
     Route: 058
     Dates: start: 20191012, end: 20191012

REACTIONS (2)
  - Cardiac failure [Fatal]
  - Renal impairment [Unknown]

NARRATIVE: CASE EVENT DATE: 20191018
